FAERS Safety Report 21832053 (Version 1)
Quarter: 2023Q1

REPORT INFORMATION
  Report Type: Report from Study
  Country: IT (occurrence: IT)
  Receive Date: 20230106
  Receipt Date: 20230106
  Transmission Date: 20230418
  Serious: Yes (Hospitalization, Other)
  Sender: FDA-Public Use
  Company Number: None

PATIENT
  Age: 18 Year
  Sex: Female
  Weight: 85 kg

DRUGS (6)
  1. METHOTREXATE SODIUM [Suspect]
     Active Substance: METHOTREXATE SODIUM
     Indication: Acute lymphocytic leukaemia recurrent
     Dosage: 201 MG + 1810 MG/DAY
     Dates: start: 20221115, end: 20221115
  2. THIOGUANINE ANHYDROUS [Suspect]
     Active Substance: THIOGUANINE ANHYDROUS
     Indication: Acute lymphocytic leukaemia recurrent
     Dosage: 200 MILLIGRAM DAILY; 200 MG/DAY , DURATION : 4 DAYS
     Dates: start: 20221115, end: 20221119
  3. ONCASPAR [Suspect]
     Active Substance: PEGASPARGASE
     Indication: Acute lymphocytic leukaemia recurrent
     Dosage: 2015 U/I /DAY
     Dates: start: 20221121, end: 20221121
  4. ELDISINE [Suspect]
     Active Substance: VINDESINE SULFATE
     Indication: Acute lymphocytic leukaemia recurrent
     Dosage: 5 MILLIGRAM DAILY; 5 MG/DAY
     Dates: start: 20221115, end: 20221115
  5. IFOSFAMIDE [Suspect]
     Active Substance: IFOSFAMIDE
     Indication: Acute lymphocytic leukaemia recurrent
     Dosage: 806 MILLIGRAM DAILY; 806 MG/DAY , DURATION : 5 DAYS
     Dates: start: 20221115, end: 20221120
  6. DAUNORUBICIN [Suspect]
     Active Substance: DAUNORUBICIN
     Indication: Acute lymphocytic leukaemia recurrent
     Dosage: 70 MILLIGRAM DAILY; 70 MG/DAY
     Dates: start: 20221120, end: 20221120

REACTIONS (6)
  - Febrile neutropenia [Recovered/Resolved]
  - Hypogammaglobulinaemia [Unknown]
  - Hepatic failure [Recovering/Resolving]
  - Pancytopenia [Not Recovered/Not Resolved]
  - Stomatitis [Recovering/Resolving]
  - Anaemia [Not Recovered/Not Resolved]

NARRATIVE: CASE EVENT DATE: 20221119
